FAERS Safety Report 17639189 (Version 1)
Quarter: 2020Q2

REPORT INFORMATION
  Report Type: Spontaneous
  Country: US (occurrence: US)
  Receive Date: 20200407
  Receipt Date: 20200407
  Transmission Date: 20200713
  Serious: Yes (Hospitalization, Other)
  Sender: FDA-Public Use
  Company Number: US-009507513-2004USA000674

PATIENT
  Age: 59 Year
  Sex: Female

DRUGS (14)
  1. ALPRAZOLAM. [Concomitant]
     Active Substance: ALPRAZOLAM
     Dosage: 1 MILLIGRAM, TWICE DAILY
  2. ATORVASTATIN [Concomitant]
     Active Substance: ATORVASTATIN
     Dosage: 10 MILLIGRAM
  3. LEXAPRO [Concomitant]
     Active Substance: ESCITALOPRAM OXALATE
     Dosage: 20 MILLIGRAM
  4. FOLIC ACID. [Concomitant]
     Active Substance: FOLIC ACID
     Dosage: 1 MILLIGRAM
  5. PANTOPRAZOLE [Concomitant]
     Active Substance: PANTOPRAZOLE
     Dosage: 40 MILLIGRAM
  6. COMPAZINE [Concomitant]
     Active Substance: PROCHLORPERAZINE MALEATE
  7. MAGNESIUM (UNSPECIFIED) [Concomitant]
     Active Substance: MAGNESIUM
     Dosage: 400 MILLIGRAM
  8. METOPROLOL. [Concomitant]
     Active Substance: METOPROLOL
     Dosage: 50 MILLIGRAM
  9. NIFEDIPINE. [Concomitant]
     Active Substance: NIFEDIPINE
     Dosage: 60 MILLIGRAM
  10. SODIUM BICARBONATE. [Concomitant]
     Active Substance: SODIUM BICARBONATE
  11. KEYTRUDA [Suspect]
     Active Substance: PEMBROLIZUMAB
     Indication: NON-SMALL CELL LUNG CANCER STAGE IV
     Dosage: UNK, Q3W
     Route: 042
     Dates: start: 201810, end: 201910
  12. DEXTROAMPHETAMINE. [Concomitant]
     Active Substance: DEXTROAMPHETAMINE
     Dosage: 20 MILLIGRAM
  13. LEVOTHYROXINE SODIUM. [Concomitant]
     Active Substance: LEVOTHYROXINE SODIUM
     Dosage: 50 MICROGRAM
  14. POTASSIUM CHLORIDE. [Concomitant]
     Active Substance: POTASSIUM CHLORIDE
     Dosage: 20 MILLIEQUIVALENT

REACTIONS (8)
  - Skin exfoliation [Recovered/Resolved]
  - Sleep disorder [Unknown]
  - Adverse event [Unknown]
  - Epistaxis [Recovered/Resolved]
  - Rectal haemorrhage [Not Recovered/Not Resolved]
  - Coronavirus infection [Not Recovered/Not Resolved]
  - Stomatitis [Not Recovered/Not Resolved]
  - Rhinorrhoea [Not Recovered/Not Resolved]

NARRATIVE: CASE EVENT DATE: 2018
